FAERS Safety Report 8186837-4 (Version None)
Quarter: 2012Q1

REPORT INFORMATION
  Report Type: 
  Country: None (occurrence: None)
  Receive Date: 20120301
  Receipt Date: 20120221
  Transmission Date: 20120608
  Serious: No
  Sender: FDA-Public Use
  Company Number: 2011SP056980

PATIENT
  Age: 83 Year
  Sex: Male

DRUGS (3)
  1. SEROQUEL [Concomitant]
  2. REMERON [Suspect]
     Indication: DEPRESSION
     Dosage: 15 MG;QD;PO
     Route: 048
     Dates: start: 20110705, end: 20110826
  3. REMERON [Suspect]
     Indication: INSOMNIA
     Dosage: 15 MG;QD;PO
     Route: 048
     Dates: start: 20110705, end: 20110826

REACTIONS (1)
  - HYPERTENSION [None]
